FAERS Safety Report 4973512-X (Version None)
Quarter: 2006Q2

REPORT INFORMATION
  Report Type: 
  Country: None (occurrence: None)
  Receive Date: 20060413
  Receipt Date: 20060413
  Transmission Date: 20061013
  Serious: Yes (Hospitalization)
  Sender: FDA-Public Use
  Company Number: None

PATIENT
  Age: 70 Year
  Sex: Male
  Weight: 51.2565 kg

DRUGS (17)
  1. CARBOPLATIN [Suspect]
     Indication: NON-SMALL CELL LUNG CANCER
     Dosage: SEE IMAGE
     Route: 042
     Dates: start: 20060111, end: 20060331
  2. PACLITAXEL [Suspect]
     Indication: NON-SMALL CELL LUNG CANCER
     Dosage: SEE IMAGE
     Route: 042
     Dates: start: 20060111, end: 20060331
  3. REGLAN [Concomitant]
  4. COUMADIN [Concomitant]
  5. GATIFLOXACIN [Concomitant]
  6. BACLOFEN [Concomitant]
  7. ALOXI [Concomitant]
  8. TAGAMET [Concomitant]
  9. BENADRYL [Concomitant]
  10. DECADRON [Concomitant]
  11. ATIVAN [Concomitant]
  12. TPN [Concomitant]
  13. LIPIDS [Concomitant]
  14. REGULAR INSULIN [Concomitant]
  15. PROTONIX [Concomitant]
  16. MORPHINE [Concomitant]
  17. BENADRYL/VISCOUS LIDOCAINE/NYSTATIN [Concomitant]

REACTIONS (16)
  - ANOREXIA [None]
  - CHEST PAIN [None]
  - CONFUSIONAL STATE [None]
  - DEHYDRATION [None]
  - DIARRHOEA [None]
  - DYSKINESIA [None]
  - DYSPHAGIA [None]
  - HAEMOGLOBIN DECREASED [None]
  - NAUSEA [None]
  - NEUTROPENIA [None]
  - OESOPHAGITIS [None]
  - POST PROCEDURAL COMPLICATION [None]
  - RESTLESS LEGS SYNDROME [None]
  - TACHYCARDIA [None]
  - VOMITING [None]
  - WEIGHT DECREASED [None]
